FAERS Safety Report 5531656-8 (Version None)
Quarter: 2007Q4

REPORT INFORMATION
  Report Type: 
  Country: None (occurrence: None)
  Receive Date: 20071128
  Receipt Date: 20071116
  Transmission Date: 20080405
  Serious: Yes (Other)
  Sender: FDA-Public Use
  Company Number: GXKR2007SE09970

PATIENT
  Sex: Male

DRUGS (1)
  1. METOPROLOL SUCCINATE [Suspect]
     Dosage: ORAL
     Route: 048

REACTIONS (4)
  - BALANCE DISORDER [None]
  - CARDIAC FIBRILLATION [None]
  - DIZZINESS [None]
  - HEADACHE [None]
